FAERS Safety Report 4610007-7 (Version None)
Quarter: 2005Q1

REPORT INFORMATION
  Report Type: 
  Country: None (occurrence: None)
  Receive Date: 20050316
  Receipt Date: 20050228
  Transmission Date: 20050727
  Serious: Yes (Other)
  Sender: FDA-Public Use
  Company Number: JP-ROCHE-398270

PATIENT
  Age: 59 Year
  Sex: Female

DRUGS (1)
  1. TAMIFLU [Suspect]
     Route: 048
     Dates: start: 20050225, end: 20050227

REACTIONS (3)
  - FATIGUE [None]
  - GRANULOCYTOPENIA [None]
  - THROMBOCYTOPENIA [None]
